FAERS Safety Report 8809503 (Version 1)
Quarter: 2012Q4

REPORT INFORMATION
  Report Type: 
  Country: US (occurrence: US)
  Receive Date: 20120926
  Receipt Date: 20120926
  Transmission Date: 20130627
  Serious: No
  Sender: FDA-Public Use
  Company Number: US-ASTRAZENECA-2012SE70447

PATIENT
  Sex: Female
  Weight: 56.7 kg

DRUGS (4)
  1. NEXIUM [Suspect]
     Indication: GASTROOESOPHAGEAL REFLUX DISEASE
     Route: 048
  2. HYDROCHLOROTHIAZIDE [Concomitant]
  3. ZYRTEC [Concomitant]
     Indication: MULTIPLE ALLERGIES
  4. PEPCID [Concomitant]

REACTIONS (1)
  - Coeliac disease [Unknown]
